FAERS Safety Report 7115110-8 (Version None)
Quarter: 2010Q4

REPORT INFORMATION
  Report Type: 
  Country: None (occurrence: None)
  Receive Date: 20101122
  Receipt Date: 20101115
  Transmission Date: 20110411
  Serious: Yes (Death)
  Sender: FDA-Public Use
  Company Number: US-CELGENEUS-163-21880-10111106

PATIENT
  Sex: Female

DRUGS (3)
  1. REVLIMID [Suspect]
     Indication: MULTIPLE MYELOMA
     Route: 048
     Dates: start: 20070401, end: 20080101
  2. REVLIMID [Suspect]
     Route: 048
     Dates: start: 20080801, end: 20090101
  3. REVLIMID [Suspect]
     Route: 048
     Dates: start: 20090401, end: 20100101

REACTIONS (1)
  - MULTIPLE MYELOMA [None]
